FAERS Safety Report 4475267-4 (Version None)
Quarter: 2004Q4

REPORT INFORMATION
  Report Type: 
  Country: None (occurrence: None)
  Receive Date: 20041013
  Receipt Date: 20041013
  Transmission Date: 20050328
  Serious: Yes (Other)
  Sender: FDA-Public Use
  Company Number: None

PATIENT
  Age: 25 Year
  Sex: Male
  Weight: 144.2439 kg

DRUGS (3)
  1. NASONEX [Suspect]
     Indication: RHINITIS
     Dosage: NOSE, 2 PUFFS, DAILY
     Dates: start: 20040801
  2. AMBIEN [Suspect]
     Indication: INSOMNIA
     Dosage: 1 PILL BEDTIME
     Dates: start: 20040901
  3. AMBIEN [Suspect]
     Indication: SLEEP DISORDER
     Dosage: 1 PILL BEDTIME
     Dates: start: 20040901

REACTIONS (2)
  - DRUG INEFFECTIVE [None]
  - DRY MOUTH [None]
